FAERS Safety Report 24282906 (Version 2)
Quarter: 2024Q4

REPORT INFORMATION
  Report Type: Spontaneous
  Country: CO (occurrence: CO)
  Receive Date: 20240904
  Receipt Date: 20241111
  Transmission Date: 20250114
  Serious: Yes (Other)
  Sender: NOVARTIS
  Company Number: CO-002147023-NVSC2024CO175820

PATIENT
  Sex: Female

DRUGS (1)
  1. OFATUMUMAB [Suspect]
     Active Substance: OFATUMUMAB
     Indication: Product used for unknown indication
     Dosage: 20 MG, QMO (EVERY MONTH) (MATERNAL EXPOSURE DURING PREGNANCY, FIRST TRIMESTER)
     Route: 058

REACTIONS (3)
  - Abortion spontaneous [Unknown]
  - Subchorionic haematoma [Unknown]
  - Maternal exposure during pregnancy [Unknown]
